FAERS Safety Report 8454769-X (Version None)
Quarter: 2012Q2

REPORT INFORMATION
  Report Type: 
  Country: None (occurrence: None)
  Receive Date: 20120615
  Receipt Date: 20120615
  Transmission Date: 20120825
  Serious: Yes (Other)
  Sender: FDA-Public Use
  Company Number: None

PATIENT
  Age: 60 Year
  Sex: Female
  Weight: 63.5036 kg

DRUGS (1)
  1. TOPIRAMATE [Suspect]
     Indication: MIGRAINE
     Dosage: 1 FOR 2 WKS - 2 TO 3 UP Q 2WKS OF NOC PO
     Route: 048
     Dates: start: 20120331

REACTIONS (18)
  - CONFUSIONAL STATE [None]
  - NERVOUSNESS [None]
  - HYPOAESTHESIA [None]
  - PARAESTHESIA [None]
  - BLOOD URINE PRESENT [None]
  - RESTLESSNESS [None]
  - BONE PAIN [None]
  - MEMORY IMPAIRMENT [None]
  - CHEST PAIN [None]
  - CRYING [None]
  - DEPRESSION [None]
  - IRRITABILITY [None]
  - TREMOR [None]
  - MOOD ALTERED [None]
  - COORDINATION ABNORMAL [None]
  - CONTUSION [None]
  - SOMNOLENCE [None]
  - ANXIETY [None]
